FAERS Safety Report 9399941 (Version 2)
Quarter: 2013Q3

REPORT INFORMATION
  Report Type: Spontaneous
  Country: FR (occurrence: FR)
  Receive Date: 20130715
  Receipt Date: 20130723
  Transmission Date: 20140515
  Serious: Yes (Other)
  Sender: FDA-Public Use
  Company Number: FR-UCBSA-091429

PATIENT
  Age: 0 None
  Sex: Female
  Weight: 2.8 kg

DRUGS (3)
  1. VIMPAT [Suspect]
     Indication: EPILEPSY
     Dosage: DAILY DOSE : 250MG
     Route: 064
     Dates: start: 2012
  2. KEPPRA [Suspect]
     Indication: EPILEPSY
     Dosage: DAILY DOSE: 1G
     Route: 064
     Dates: start: 2012
  3. LYRICA [Concomitant]
     Indication: EPILEPSY
     Dosage: DAILY DOSE: 100MG
     Route: 064
     Dates: start: 2012, end: 201210

REACTIONS (3)
  - Low birth weight baby [Unknown]
  - Placental disorder [Unknown]
  - Foetal exposure during pregnancy [Recovered/Resolved]
